FAERS Safety Report 8725236 (Version 2)
Quarter: 2012Q4

REPORT INFORMATION
  Report Type: 
  Country: FI (occurrence: FI)
  Receive Date: 20120815
  Receipt Date: 20120829
  Transmission Date: 20130627
  Serious: Yes (Death, Hospitalization, Other)
  Sender: FDA-Public Use
  Company Number: FI-ELI_LILLY_AND_COMPANY-FI201208003771

PATIENT
  Age: 64 Year
  Sex: Female

DRUGS (14)
  1. FORSTEO [Suspect]
     Indication: OSTEOPOROSIS
     Dosage: 20 ug, qd
     Route: 058
     Dates: start: 20100524
  2. EMCONCOR                                /BEL/ [Concomitant]
     Indication: HYPERTENSION
  3. RAMIPRIL [Concomitant]
     Indication: RENAL DISORDER
  4. DUREKAL [Concomitant]
     Indication: HYPERKALAEMIA
  5. CALCICHEW [Concomitant]
     Indication: MEDICAL DIET
  6. ROXIBION [Concomitant]
  7. DOXIMED                            /00055705/ [Concomitant]
  8. MAREVAN [Concomitant]
  9. ZOLT [Concomitant]
  10. EPOETIN NOS [Concomitant]
  11. MOVICOL                            /01625101/ [Concomitant]
     Indication: CONSTIPATION
  12. CORTISONE [Concomitant]
     Dosage: 4 mg, qod
  13. NORSPAN [Concomitant]
     Indication: PAIN
  14. GAMMAGLOBULIN [Concomitant]

REACTIONS (3)
  - Death [Fatal]
  - Varicose ulceration [Not Recovered/Not Resolved]
  - General physical health deterioration [Not Recovered/Not Resolved]
